FAERS Safety Report 20157178 (Version 1)
Quarter: 2021Q4

REPORT INFORMATION
  Report Type: Spontaneous
  Country: US (occurrence: US)
  Receive Date: 20211207
  Receipt Date: 20211207
  Transmission Date: 20220303
  Serious: No
  Sender: FDA-Public Use
  Company Number: US-BRAINTREE LABORATORIES, INC.-2021BTE00919

PATIENT
  Age: 45 Year
  Sex: Female

DRUGS (8)
  1. SUTAB [Suspect]
     Active Substance: MAGNESIUM SULFATE\POTASSIUM CHLORIDE\SODIUM SULFATE
     Indication: Colonoscopy
     Dosage: 1 X 12 TABLETS, 1X
     Route: 048
     Dates: start: 20211109
  2. DIAMOX SEQUELS [Concomitant]
     Active Substance: ACETAZOLAMIDE
  3. ACCOLATE [Concomitant]
     Active Substance: ZAFIRLUKAST
  4. KETOTIFEN [Concomitant]
     Active Substance: KETOTIFEN
  5. PEPCID [Concomitant]
     Active Substance: FAMOTIDINE
  6. COMPOUNDED MAGNESIUM [Concomitant]
  7. VITAMIN D [Concomitant]
     Active Substance: VITAMIN D NOS
  8. ALLEGRA [Concomitant]
     Active Substance: FEXOFENADINE HYDROCHLORIDE

REACTIONS (1)
  - Vomiting [Unknown]

NARRATIVE: CASE EVENT DATE: 20211109
